FAERS Safety Report 17208683 (Version 3)
Quarter: 2020Q1

REPORT INFORMATION
  Report Type: Report from Study
  Country: TR (occurrence: TR)
  Receive Date: 20191227
  Receipt Date: 20200127
  Transmission Date: 20200409
  Serious: Yes (Life-Threatening)
  Sender: FDA-Public Use
  Company Number: TR-EISAI MEDICAL RESEARCH-EC-2019-067755

PATIENT
  Age: 61 Year
  Sex: Female
  Weight: 67 kg

DRUGS (17)
  1. PEMBROLIZUMAB. [Suspect]
     Active Substance: PEMBROLIZUMAB
     Indication: NON-SMALL CELL LUNG CANCER
     Route: 041
     Dates: start: 20191211, end: 20191211
  2. MUCOVIT C [Concomitant]
     Dates: start: 201701
  3. FOLIDOCE [Concomitant]
     Active Substance: CYANOCOBALAMIN\FOLIC ACID
     Dates: start: 20191202, end: 20191202
  4. EMEND [Concomitant]
     Active Substance: APREPITANT
     Dates: start: 20191211, end: 20191211
  5. GRANEXA [Concomitant]
     Dates: start: 20191211, end: 20191211
  6. RANITAB [Concomitant]
     Dates: start: 20191211, end: 20191211
  7. COVERSYL [Concomitant]
     Active Substance: PERINDOPRIL
     Dates: start: 200901
  8. LENVATINIB [Suspect]
     Active Substance: LENVATINIB
     Indication: NON-SMALL CELL LUNG CANCER
     Route: 048
     Dates: start: 20191211
  9. PEMBROLIZUMAB. [Suspect]
     Active Substance: PEMBROLIZUMAB
     Route: 041
     Dates: start: 20200103
  10. CISPLATIN. [Suspect]
     Active Substance: CISPLATIN
     Indication: NON-SMALL CELL LUNG CANCER
     Route: 041
     Dates: start: 20191211, end: 20191211
  11. SERETIDE [Concomitant]
     Active Substance: FLUTICASONE PROPIONATE\SALMETEROL XINAFOATE
     Dates: start: 201701
  12. PEMETREXED. [Suspect]
     Active Substance: PEMETREXED
     Indication: NON-SMALL CELL LUNG CANCER
     Route: 041
     Dates: start: 20191211, end: 20191211
  13. KORDEXA [Concomitant]
     Active Substance: DEXAMETHASONE
     Dates: start: 20191210, end: 20191212
  14. CISPLATIN. [Suspect]
     Active Substance: CISPLATIN
     Route: 041
     Dates: start: 20200103
  15. PEMETREXED. [Suspect]
     Active Substance: PEMETREXED
     Route: 041
     Dates: start: 20200103
  16. CONCOR [Concomitant]
     Active Substance: BISOPROLOL FUMARATE
     Dates: start: 200901
  17. DODEX [Concomitant]
     Active Substance: CYANOCOBALAMIN
     Dates: start: 20191211, end: 20191211

REACTIONS (1)
  - Hypertension [Recovered/Resolved]

NARRATIVE: CASE EVENT DATE: 20191212
